FAERS Safety Report 5828532-X (Version None)
Quarter: 2008Q3

REPORT INFORMATION
  Report Type: 
  Country: None (occurrence: None)
  Receive Date: 20080729
  Receipt Date: 20080729
  Transmission Date: 20090109
  Serious: Yes (Life-Threatening)
  Sender: FDA-Public Use
  Company Number: None

PATIENT
  Age: 36 Year
  Sex: Female
  Weight: 56.6996 kg

DRUGS (1)
  1. AMBIEN CR [Suspect]
     Indication: INSOMNIA
     Dosage: 12.5 MG ONCE AT BEDTIME PO
     Route: 048
     Dates: start: 20070618, end: 20070623

REACTIONS (10)
  - AGITATION [None]
  - ANXIETY [None]
  - DELUSION [None]
  - FEELING ABNORMAL [None]
  - HYPERPHAGIA [None]
  - INSOMNIA [None]
  - SELF INJURIOUS BEHAVIOUR [None]
  - SELF-INJURIOUS IDEATION [None]
  - STRESS [None]
  - THINKING ABNORMAL [None]
